FAERS Safety Report 17989050 (Version 1)
Quarter: 2020Q3

REPORT INFORMATION
  Report Type: Spontaneous
  Country: CR (occurrence: CR)
  Receive Date: 20200707
  Receipt Date: 20200707
  Transmission Date: 20201103
  Serious: Yes (Other)
  Sender: FDA-Public Use
  Company Number: CR-PFIZER INC-2020259615

PATIENT
  Age: 91 Year
  Sex: Female

DRUGS (1)
  1. LIPITOR [Suspect]
     Active Substance: ATORVASTATIN CALCIUM
     Dosage: 1 DF (TABLET), DAILY
     Route: 048
     Dates: start: 2016

REACTIONS (2)
  - Speech disorder [Unknown]
  - Cerebrovascular accident [Unknown]
